FAERS Safety Report 9264782 (Version 1)
Quarter: 2013Q2

REPORT INFORMATION
  Report Type: Spontaneous
  Country: US (occurrence: None)
  Receive Date: 20130429
  Receipt Date: 20130429
  Transmission Date: 20140414
  Serious: Yes (Hospitalization)
  Sender: FDA-Public Use
  Company Number: None

PATIENT
  Age: 2 Year
  Sex: Female
  Weight: 10.7 kg

DRUGS (4)
  1. CYCLOPHOSPHAMIDE [Suspect]
  2. DACTINOMYCIN [Suspect]
  3. MESNA [Suspect]
  4. VINCRISTINE SULFATE [Suspect]

REACTIONS (4)
  - Tachycardia [None]
  - Hypotension [None]
  - Neutropenia [None]
  - Septic shock [None]
